FAERS Safety Report 18356737 (Version 1)
Quarter: 2020Q4

REPORT INFORMATION
  Report Type: Spontaneous
  Country: US (occurrence: US)
  Receive Date: 20201007
  Receipt Date: 20201007
  Transmission Date: 20210114
  Serious: No
  Sender: FDA-Public Use
  Company Number: US-SPROUT PHARMACEUTICALS, INC.-2019SP000086

PATIENT
  Age: 27 Year
  Sex: Female
  Weight: 86.26 kg

DRUGS (1)
  1. ADDYI [Suspect]
     Active Substance: FLIBANSERIN
     Indication: LIBIDO DECREASED
     Route: 048
     Dates: start: 20190909, end: 20190915

REACTIONS (5)
  - Drug ineffective [Not Recovered/Not Resolved]
  - Feeling drunk [Not Recovered/Not Resolved]
  - Migraine [Not Recovered/Not Resolved]
  - Asthenopia [Not Recovered/Not Resolved]
  - Somnolence [Not Recovered/Not Resolved]

NARRATIVE: CASE EVENT DATE: 201909
